FAERS Safety Report 8542905-6 (Version None)
Quarter: 2012Q3

REPORT INFORMATION
  Report Type: 
  Country: None (occurrence: None)
  Receive Date: 20120727
  Receipt Date: 20120713
  Transmission Date: 20120928
  Serious: Yes (Other)
  Sender: FDA-Public Use
  Company Number: VE-RANBAXY-2012RR-58049

PATIENT
  Age: 35 Year
  Sex: Female

DRUGS (4)
  1. MILAX [Concomitant]
     Indication: ANAL FISSURE
     Dosage: UNK
     Route: 065
  2. PANTOPRAZOLE [Suspect]
     Indication: GASTRITIS
     Dosage: UNK
     Route: 065
  3. DILTIAZEM [Concomitant]
     Indication: ANAL FISSURE
     Dosage: UNK
     Route: 061
  4. ALEVIAN DUO [Concomitant]
     Indication: ANAL FISSURE
     Dosage: UNK
     Route: 065

REACTIONS (1)
  - DERMATITIS EXFOLIATIVE [None]
